FAERS Safety Report 24720261 (Version 4)
Quarter: 2025Q1

REPORT INFORMATION
  Report Type: Report from Study
  Country: US (occurrence: US)
  Receive Date: 20241211
  Receipt Date: 20250217
  Transmission Date: 20250408
  Serious: Yes (Hospitalization, Other)
  Sender: ABBVIE
  Company Number: US-ABBVIE-6039260

PATIENT
  Age: 85 Year
  Sex: Female

DRUGS (1)
  1. IMBRUVICA [Suspect]
     Active Substance: IBRUTINIB
     Indication: Waldenstrom^s macroglobulinaemia
     Route: 048
     Dates: start: 201712

REACTIONS (13)
  - Coronary artery disease [Recovering/Resolving]
  - Illness [Unknown]
  - Atrioventricular block [Unknown]
  - Essential hypertension [Unknown]
  - Bradycardia [Unknown]
  - Hyperlipidaemia [Unknown]
  - Mitral valve incompetence [Unknown]
  - Obstructive sleep apnoea syndrome [Unknown]
  - Pulmonary hypertension [Unknown]
  - Tricuspid valve incompetence [Unknown]
  - Cardiac valve disease [Unknown]
  - Senile osteoporosis [Unknown]
  - Dilated cardiomyopathy [Unknown]
